FAERS Safety Report 8275820-6 (Version None)
Quarter: 2012Q2

REPORT INFORMATION
  Report Type: 
  Country: None (occurrence: None)
  Receive Date: 20120410
  Receipt Date: 20120410
  Transmission Date: 20120825
  Serious: Yes (Other)
  Sender: FDA-Public Use
  Company Number: None

PATIENT
  Sex: Female

DRUGS (1)
  1. PEG-INTRON [Suspect]
     Dosage: 80 MCG/0.5ML WEEKLY SQ
     Route: 058
     Dates: start: 20120216, end: 20120406

REACTIONS (3)
  - RASH PRURITIC [None]
  - HEART RATE INCREASED [None]
  - EXFOLIATIVE RASH [None]
